FAERS Safety Report 5945182-5 (Version None)
Quarter: 2008Q4

REPORT INFORMATION
  Report Type: 
  Country: None (occurrence: None)
  Receive Date: 20081107
  Receipt Date: 20081030
  Transmission Date: 20090506
  Serious: Yes (Congenital Anomaly)
  Sender: FDA-Public Use
  Company Number: B0544144A

PATIENT

DRUGS (1)
  1. ZIDOVUDINE [Suspect]
     Indication: HIV INFECTION
     Dosage: 500MG PER DAY

REACTIONS (1)
  - VENTRICULAR HYPOPLASIA [None]
